FAERS Safety Report 16764509 (Version 6)
Quarter: 2019Q4

REPORT INFORMATION
  Report Type: Report from Study
  Country: JP (occurrence: JP)
  Receive Date: 20190902
  Receipt Date: 20191111
  Transmission Date: 20200122
  Serious: Yes (Death, Life-Threatening, Hospitalization, Disabling, Other)
  Sender: FDA-Public Use
  Company Number: JP-009507513-1908JPN003018J

PATIENT
  Age: 45 Year
  Sex: Female
  Weight: 38 kg

DRUGS (1)
  1. KEYTRUDA [Suspect]
     Active Substance: PEMBROLIZUMAB
     Indication: CERVIX CARCINOMA
     Dosage: 200 MILLIGRAM, EVERY 3 WEEKS
     Route: 041
     Dates: start: 20190515, end: 20190717

REACTIONS (6)
  - Diarrhoea [Not Recovered/Not Resolved]
  - Dehydration [Recovered/Resolved]
  - Mechanical ileus [Recovered/Resolved]
  - Pneumonia aspiration [Fatal]
  - Disseminated intravascular coagulation [Fatal]
  - Immune-mediated enterocolitis [Not Recovered/Not Resolved]

NARRATIVE: CASE EVENT DATE: 20190730
